FAERS Safety Report 15269867 (Version 1)
Quarter: 2018Q3

REPORT INFORMATION
  Report Type: Report from Study
  Country: US (occurrence: US)
  Receive Date: 20180813
  Receipt Date: 20180813
  Transmission Date: 20181010
  Serious: Yes (Hospitalization, Other)
  Sender: FDA-Public Use
  Company Number: US-ROCHE-2165210

PATIENT
  Age: 77 Year
  Sex: Female
  Weight: 80.1 kg

DRUGS (4)
  1. PEMETREXED. [Suspect]
     Active Substance: PEMETREXED
     Indication: NON-SMALL CELL LUNG CANCER
     Dosage: 500 MG/M2 ON DAY 1 OF A 21? DAY CYCLE FOR 4?6 CYCLES.
     Route: 065
  2. PIRFENIDONE. [Suspect]
     Active Substance: PIRFENIDONE
     Indication: NON-SMALL CELL LUNG CANCER
     Dosage: DOSE ESCALATION: LEVEL 1: ONE CAPSULE (TOTAL DAILY DOSE 801 MG): LEVEL 2: TWO CAPSULES (TOTAL DAILY
     Route: 048
  3. CARBOPLATIN. [Suspect]
     Active Substance: CARBOPLATIN
     Indication: NON-SMALL CELL LUNG CANCER
     Dosage: AREA UNDER CURVE (AUC) 6 ON DAY 1 OF 21?DAY CYCLE FOR 4? 6 CYCLES
     Route: 065
  4. MACROBID (UNITED STATES) [Concomitant]
     Route: 048

REACTIONS (2)
  - Colitis [Unknown]
  - Syncope [Unknown]

NARRATIVE: CASE EVENT DATE: 20180801
